FAERS Safety Report 19362619 (Version 1)
Quarter: 2021Q2

REPORT INFORMATION
  Report Type: Spontaneous
  Country: US (occurrence: US)
  Receive Date: 20210601
  Receipt Date: 20210601
  Transmission Date: 20210717
  Serious: No
  Sender: FDA-Public Use
  Company Number: US-ABBVIE-21K-163-3831101-00

PATIENT
  Age: 38 Year
  Sex: Female
  Weight: 79.9 kg

DRUGS (5)
  1. ORIAHNN [Suspect]
     Active Substance: ELAGOLIX SODIUM\ESTRADIOL\NORETHINDRONE
     Indication: UTERINE LEIOMYOMA
     Route: 048
     Dates: start: 20210320
  2. IRON [Concomitant]
     Active Substance: IRON
     Indication: SUPPLEMENTATION THERAPY
  3. VITAMIN B12 [Concomitant]
     Active Substance: CYANOCOBALAMIN
     Indication: SUPPLEMENTATION THERAPY
  4. ORIAHNN [Suspect]
     Active Substance: ELAGOLIX SODIUM\ESTRADIOL\NORETHINDRONE
     Indication: UTERINE LEIOMYOMA
     Route: 048
     Dates: start: 20210320
  5. VITAMIN D [Concomitant]
     Active Substance: VITAMIN D NOS
     Indication: SUPPLEMENTATION THERAPY

REACTIONS (3)
  - Nausea [Not Recovered/Not Resolved]
  - Vaginal discharge [Not Recovered/Not Resolved]
  - Diarrhoea [Not Recovered/Not Resolved]

NARRATIVE: CASE EVENT DATE: 20210322
